FAERS Safety Report 18717189 (Version 1)
Quarter: 2021Q1

REPORT INFORMATION
  Report Type: Spontaneous
  Country: US (occurrence: US)
  Receive Date: 20210108
  Receipt Date: 20210108
  Transmission Date: 20210419
  Serious: Yes (Hospitalization)
  Sender: FDA-Public Use
  Company Number: US-MYLANLABS-2021M1000360

PATIENT
  Age: 48 Year
  Sex: Female

DRUGS (1)
  1. DIPHENHYDRAMINE. [Suspect]
     Active Substance: DIPHENHYDRAMINE
     Indication: HYPERSENSITIVITY
     Dosage: UP TO 2 BOTTLES DAILY
     Route: 065

REACTIONS (2)
  - Hyponatraemia [Recovered/Resolved]
  - Polydipsia [Unknown]
